FAERS Safety Report 5588283-6 (Version None)
Quarter: 2008Q1

REPORT INFORMATION
  Report Type: 
  Country: None (occurrence: None)
  Receive Date: 20080111
  Receipt Date: 20080104
  Transmission Date: 20080703
  Serious: Yes (Other)
  Sender: FDA-Public Use
  Company Number: US-ASTRAZENECA-2008UW00400

PATIENT
  Age: 32 Year
  Sex: Female
  Weight: 88.5 kg

DRUGS (1)
  1. SEROQUEL [Suspect]
     Indication: BIPOLAR DISORDER
     Route: 048
     Dates: start: 20070901, end: 20071101

REACTIONS (3)
  - ORAL PAIN [None]
  - TOOTH ABSCESS [None]
  - TOOTHACHE [None]
